FAERS Safety Report 11225481 (Version 1)
Quarter: 2015Q2

REPORT INFORMATION
  Report Type: Spontaneous
  Country: US (occurrence: None)
  Receive Date: 20150626
  Receipt Date: 20150626
  Transmission Date: 20150821
  Serious: Yes (Life-Threatening, Other)
  Sender: FDA-Public Use
  Company Number: None

PATIENT
  Age: 35 Year
  Sex: Female
  Weight: 88 kg

DRUGS (1)
  1. XENICAL [Suspect]
     Active Substance: ORLISTAT
     Indication: WEIGHT DECREASED
     Dosage: 30 DAY SUPPLY THREE TIMES DAILY TAKEN BY MOUTH
     Route: 048
     Dates: start: 20150413, end: 20150514

REACTIONS (2)
  - Autoimmune hepatitis [None]
  - Hepatitis acute [None]

NARRATIVE: CASE EVENT DATE: 20150514
